FAERS Safety Report 7309881-5 (Version None)
Quarter: 2011Q1

REPORT INFORMATION
  Report Type: 
  Country: None (occurrence: None)
  Receive Date: 20110224
  Receipt Date: 20091221
  Transmission Date: 20110831
  Serious: No
  Sender: FDA-Public Use
  Company Number: 2009BI037988

PATIENT
  Sex: Female

DRUGS (4)
  1. BIRTH CONTROL (NOS) [Concomitant]
  2. TYSABRI [Suspect]
     Route: 042
     Dates: start: 20040826, end: 20060822
  3. TYSABRI [Suspect]
     Indication: MULTIPLE SCLEROSIS
     Route: 042
     Dates: start: 20070228
  4. STEROIDS (NOS) [Concomitant]

REACTIONS (10)
  - HALLUCINATION [None]
  - STRESS [None]
  - FALL [None]
  - ASTHENIA [None]
  - DIZZINESS [None]
  - FOOT FRACTURE [None]
  - TEMPERATURE INTOLERANCE [None]
  - MULTIPLE SCLEROSIS RELAPSE [None]
  - COUGH [None]
  - NASOPHARYNGITIS [None]
